FAERS Safety Report 8430435-1 (Version None)
Quarter: 2012Q2

REPORT INFORMATION
  Report Type: 
  Country: None (occurrence: None)
  Receive Date: 20120612
  Receipt Date: 20120607
  Transmission Date: 20120825
  Serious: Yes (Other)
  Sender: FDA-Public Use
  Company Number: US-PFIZER INC-2012137874

PATIENT
  Sex: Female
  Weight: 48.98 kg

DRUGS (3)
  1. LIPITOR [Suspect]
     Indication: LOW DENSITY LIPOPROTEIN INCREASED
  2. LIPITOR [Suspect]
     Indication: BLOOD CHOLESTEROL INCREASED
     Dosage: 40 MG, 1X/DAY
     Route: 048
     Dates: start: 20120425, end: 20120601
  3. SYNTHROID [Concomitant]
     Indication: THYROID DISORDER
     Dosage: 0.75 UG, 1X/DAY

REACTIONS (5)
  - DIARRHOEA [None]
  - INSOMNIA [None]
  - OEDEMA [None]
  - OEDEMA PERIPHERAL [None]
  - HEPATIC ENZYME INCREASED [None]
